FAERS Safety Report 8565783 (Version 2)
Quarter: 2012Q4

REPORT INFORMATION
  Report Type: 
  Country: US (occurrence: US)
  Receive Date: 20120516
  Receipt Date: 20121113
  Transmission Date: 20130627
  Serious: Yes (Other)
  Sender: FDA-Public Use
  Company Number: US-INCYTE CORPORATION-2012IN000781

PATIENT
  Age: 69 Year
  Sex: Male

DRUGS (8)
  1. JAKAFI [Suspect]
     Indication: MYELOFIBROSIS
     Dosage: 10 mg, bid
     Route: 048
     Dates: start: 20120110, end: 20120408
  2. JAKAFI [Suspect]
     Dosage: 5 mg, bid
     Route: 048
     Dates: start: 20120409, end: 20120508
  3. JAKAFI [Suspect]
     Dosage: 10 mg, bid
     Route: 048
     Dates: start: 20120509, end: 2012
  4. JAKAFI [Suspect]
     Dosage: 15 mg, bid
     Route: 048
     Dates: start: 2012, end: 20121030
  5. ALLOPURINOL [Concomitant]
  6. ATENOLOL [Concomitant]
  7. LOSARTAN [Concomitant]
  8. SIMVASTATIN [Concomitant]

REACTIONS (3)
  - Pancytopenia [Recovered/Resolved]
  - White blood cell count increased [Unknown]
  - Red blood cell count abnormal [Unknown]
